FAERS Safety Report 8557123-5 (Version None)
Quarter: 2012Q3

REPORT INFORMATION
  Report Type: 
  Country: None (occurrence: None)
  Receive Date: 20120726
  Receipt Date: 20120726
  Transmission Date: 20120928
  Serious: Yes (Hospitalization)
  Sender: FDA-Public Use
  Company Number: None

PATIENT
  Age: 36 Year
  Sex: Female
  Weight: 109.5 kg

DRUGS (1)
  1. INFLIXIMAB [Suspect]
     Indication: CROHN'S DISEASE
     Dosage: 500 MG UD IV
     Route: 042
     Dates: start: 20120430, end: 20120430

REACTIONS (3)
  - URTICARIA [None]
  - PRURITUS [None]
  - RASH [None]
